FAERS Safety Report 8798839 (Version 1)
Quarter: 2012Q4

REPORT INFORMATION
  Report Type: 
  Country: US (occurrence: US)
  Receive Date: 20120920
  Receipt Date: 20120920
  Transmission Date: 20130627
  Serious: Yes (Other)
  Sender: FDA-Public Use
  Company Number: US-ROXANE LABORATORIES, INC.-2012-RO-01876RO

PATIENT
  Sex: Female
  Weight: 110 kg

DRUGS (1)
  1. CODEINE SULFATE [Suspect]

REACTIONS (2)
  - Respiratory distress [Recovered/Resolved]
  - Respiratory arrest [Recovered/Resolved]
